FAERS Safety Report 17850922 (Version 4)
Quarter: 2020Q3

REPORT INFORMATION
  Report Type: Spontaneous
  Country: FR (occurrence: FR)
  Receive Date: 20200602
  Receipt Date: 20200817
  Transmission Date: 20201104
  Serious: Yes (Life-Threatening, Hospitalization)
  Sender: FDA-Public Use
  Company Number: NVSC2020FR151458

PATIENT
  Age: 89 Year
  Sex: Female

DRUGS (9)
  1. MORPHINE [Interacting]
     Active Substance: MORPHINE
     Dosage: 30 MG (LONG ACTING)
     Route: 065
  2. MELOXICAM. [Suspect]
     Active Substance: MELOXICAM
     Indication: BACK PAIN
     Dosage: UNK
     Route: 065
  3. MORPHINE [Interacting]
     Active Substance: MORPHINE
     Indication: BACK PAIN
     Dosage: 10 MG (IMMEDIATE RELEASE)
     Route: 065
  4. VALSARTAN AND HYDROCHLOROTHIAZIDE [Suspect]
     Active Substance: HYDROCHLOROTHIAZIDE\VALSARTAN
     Indication: HYPERTENSION
     Dosage: UNK
     Route: 065
  5. METFORMIN [Suspect]
     Active Substance: METFORMIN HYDROCHLORIDE
     Indication: TYPE 2 DIABETES MELLITUS
     Dosage: UNK
     Route: 065
  6. DICLOFENAC SODIUM. [Suspect]
     Active Substance: DICLOFENAC SODIUM
     Indication: BACK PAIN
     Dosage: UNK
     Route: 061
  7. OPIUM. [Suspect]
     Active Substance: OPIUM
     Indication: BACK PAIN
     Dosage: UNK
     Route: 065
  8. RILMENIDINE [Suspect]
     Active Substance: RILMENIDINE
     Indication: HYPERTENSION
     Dosage: UNK
     Route: 065
  9. PARACETAMOL [Suspect]
     Active Substance: ACETAMINOPHEN
     Indication: BACK PAIN
     Dosage: UNK
     Route: 065

REACTIONS (10)
  - Depressed level of consciousness [Unknown]
  - Acute kidney injury [Recovering/Resolving]
  - Medication error [Unknown]
  - Drug interaction [Unknown]
  - Lactic acidosis [Recovering/Resolving]
  - Overdose [Unknown]
  - Delirium [Unknown]
  - Respiratory failure [Unknown]
  - Bradypnoea [Unknown]
  - Accidental overdose [Unknown]
